FAERS Safety Report 19359787 (Version 4)
Quarter: 2021Q3

REPORT INFORMATION
  Report Type: Report from Study
  Country: NL (occurrence: NL)
  Receive Date: 20210601
  Receipt Date: 20210809
  Transmission Date: 20211014
  Serious: Yes (Hospitalization)
  Sender: FDA-Public Use
  Company Number: NL-EISAI MEDICAL RESEARCH-EC-2021-093667

PATIENT
  Age: 83 Year
  Sex: Male

DRUGS (5)
  1. PREDNISOLONE. [Concomitant]
     Active Substance: PREDNISOLONE
     Dates: start: 20210520
  2. LENVATINIB [Suspect]
     Active Substance: LENVATINIB
     Indication: PLEURAL MESOTHELIOMA MALIGNANT
     Route: 048
     Dates: start: 20210419, end: 20210504
  3. PEMBROLIZUMAB. [Suspect]
     Active Substance: PEMBROLIZUMAB
     Indication: PLEURAL MESOTHELIOMA MALIGNANT
     Route: 041
     Dates: start: 20210419, end: 20210511
  4. TAMSULOSIN [Concomitant]
     Active Substance: TAMSULOSIN
     Dates: start: 20201223
  5. LENVATINIB [Suspect]
     Active Substance: LENVATINIB
     Route: 048
     Dates: start: 20210511, end: 20210517

REACTIONS (2)
  - Myositis [Unknown]
  - Atrial fibrillation [Recovered/Resolved]

NARRATIVE: CASE EVENT DATE: 20210521
